FAERS Safety Report 5624720-6 (Version None)
Quarter: 2008Q1

REPORT INFORMATION
  Report Type: 
  Country: None (occurrence: None)
  Receive Date: 20080213
  Receipt Date: 20080207
  Transmission Date: 20080703
  Serious: Yes (Other)
  Sender: FDA-Public Use
  Company Number: D0055772A

PATIENT
  Age: 43 Year
  Sex: Male
  Weight: 40.9 kg

DRUGS (2)
  1. ARIXTRA [Suspect]
     Indication: THROMBOSIS PROPHYLAXIS
     Route: 058
     Dates: start: 20070911, end: 20070919
  2. ALLOPURINOL [Concomitant]
     Dosage: 300MG PER DAY
     Route: 048
     Dates: start: 20070925, end: 20080205

REACTIONS (2)
  - CIRCULATORY COLLAPSE [None]
  - SHOCK [None]
